FAERS Safety Report 7303454 (Version 3)
Quarter: 2012Q4

REPORT INFORMATION
  Report Type: Report from Study
  Country: RO (occurrence: RO)
  Receive Date: 20100303
  Receipt Date: 20120910
  Transmission Date: 20130627
  Serious: Yes (Hospitalization)
  Sender: FDA-Public Use
  Company Number: RO-ROCHE-687698

PATIENT
  Age: 60 Year
  Sex: Female
  Weight: 55 kg

DRUGS (6)
  1. PEGASYS [Suspect]
     Indication: HEPATITIS C
     Route: 058
     Dates: start: 20091204, end: 20100226
  2. COPEGUS [Suspect]
     Indication: HEPATITIS C
     Route: 048
     Dates: start: 20091204, end: 20100226
  3. AMPICILLIN [Concomitant]
     Indication: HEPATIC FAILURE
     Route: 042
     Dates: start: 20100226, end: 20100310
  4. FUROSEMIDE [Concomitant]
     Indication: HEPATIC FAILURE
     Route: 065
  5. ARGININE [Concomitant]
     Indication: HEPATIC FAILURE
     Route: 042
  6. VITAMIN K [Concomitant]
     Indication: HEPATIC FAILURE
     Route: 042

REACTIONS (1)
  - Hepatic failure [Recovered/Resolved]
